FAERS Safety Report 17610078 (Version 1)
Quarter: 2020Q2

REPORT INFORMATION
  Report Type: Spontaneous
  Country: CN (occurrence: CN)
  Receive Date: 20200401
  Receipt Date: 20200401
  Transmission Date: 20200713
  Serious: Yes (Disabling)
  Sender: FDA-Public Use
  Company Number: CN-PFIZER INC-2020132230

PATIENT
  Age: 77 Year
  Sex: Male
  Weight: 62.2 kg

DRUGS (6)
  1. DECITABINE. [Suspect]
     Active Substance: DECITABINE
     Indication: ACUTE MYELOID LEUKAEMIA
     Dosage: 15 MG, 1X/DAY
     Route: 041
     Dates: start: 20200124, end: 20200128
  2. CYTOSAR [Suspect]
     Active Substance: CYTARABINE
     Indication: ACUTE MYELOID LEUKAEMIA
     Dosage: 25 MG, 2X/DAY
     Route: 058
     Dates: start: 20200126, end: 20200201
  3. STERILE WATER [Concomitant]
     Active Substance: WATER
     Indication: VEHICLE SOLUTION USE
     Dosage: 5 ML, ALTERNATE DAY
     Route: 042
     Dates: start: 20200126, end: 20200130
  4. ZAVEDOS [Suspect]
     Active Substance: IDARUBICIN
     Indication: ACUTE MYELOID LEUKAEMIA
     Dosage: 5 MG, ALTERNATE DAY
     Route: 042
     Dates: start: 20200126, end: 20200130
  5. SODIUM CHLORIDE. [Concomitant]
     Active Substance: SODIUM CHLORIDE
     Indication: VEHICLE SOLUTION USE
     Dosage: 250 ML, 1X/DAY
     Route: 041
     Dates: start: 20200124, end: 20200128
  6. STERILE WATER [Concomitant]
     Active Substance: WATER
     Dosage: 1 ML, 2X/DAY
     Route: 058
     Dates: start: 20200126, end: 20200201

REACTIONS (3)
  - Hepatic function abnormal [Recovering/Resolving]
  - Bone marrow failure [Recovering/Resolving]
  - Thrombocytosis [Recovering/Resolving]

NARRATIVE: CASE EVENT DATE: 20200210
